FAERS Safety Report 4273643-6 (Version None)
Quarter: 2004Q1

REPORT INFORMATION
  Report Type: 
  Country: None (occurrence: None)
  Receive Date: 20040119
  Receipt Date: 20031112
  Transmission Date: 20041129
  Serious: Yes (Life-Threatening, Hospitalization, Other)
  Sender: FDA-Public Use
  Company Number: WAES 0311USA01397

PATIENT
  Age: 60 Year
  Sex: Female
  Weight: 57 kg

DRUGS (1)
  1. VIOXX [Suspect]
     Route: 048

REACTIONS (12)
  - ANAEMIA [None]
  - BLOOD PRESSURE DECREASED [None]
  - DIVERTICULUM [None]
  - EROSIVE OESOPHAGITIS [None]
  - FLUID OVERLOAD [None]
  - HEART RATE INCREASED [None]
  - HIATUS HERNIA [None]
  - INTERVERTEBRAL DISC PROTRUSION [None]
  - LOWER GASTROINTESTINAL HAEMORRHAGE [None]
  - MALNUTRITION [None]
  - RECTAL HAEMORRHAGE [None]
  - URINARY TRACT INFECTION [None]
